FAERS Safety Report 10330185 (Version 2)
Quarter: 2014Q3

REPORT INFORMATION
  Report Type: Report from Study
  Country: US (occurrence: US)
  Receive Date: 20140721
  Receipt Date: 20140721
  Transmission Date: 20150326
  Serious: Yes (Hospitalization, Other)
  Sender: FDA-Public Use
  Company Number: US-ACTELION-A-US2014-97129

PATIENT
  Age: 5 Year
  Sex: Female
  Weight: 13 kg

DRUGS (9)
  1. CAPOTEN [Concomitant]
     Active Substance: CAPTOPRIL
  2. REMODULIN [Concomitant]
     Active Substance: TREPROSTINIL
  3. ASPIRIN. [Concomitant]
     Active Substance: ASPIRIN
     Dosage: 81 MG, QD
  4. LASIX [Concomitant]
     Active Substance: FUROSEMIDE
     Dosage: 15 MG, BID
     Route: 048
  5. PRILOSEC [Concomitant]
     Active Substance: OMEPRAZOLE MAGNESIUM
     Dosage: 10 MG, QD
     Route: 048
  6. TRACLEER [Suspect]
     Active Substance: BOSENTAN\BOSENTAN MONOHYDRATE
     Indication: PULMONARY ARTERIAL HYPERTENSION
     Dosage: 28.125 MG, BID
     Route: 048
  7. SILDENAFIL [Concomitant]
     Active Substance: SILDENAFIL
     Dosage: 30 MG, TID
     Route: 048
  8. COLCHICINE. [Concomitant]
     Active Substance: COLCHICINE
     Dosage: 0.6 MG, Q12HRS
     Route: 048
  9. PREDNISOLONE. [Concomitant]
     Active Substance: PREDNISOLONE
     Dosage: 6 MG, QD
     Route: 048

REACTIONS (3)
  - Right ventricular systolic pressure increased [Unknown]
  - Convulsion [Unknown]
  - Unresponsive to stimuli [Unknown]

NARRATIVE: CASE EVENT DATE: 201402
